FAERS Safety Report 12544644 (Version 1)
Quarter: 2016Q3

REPORT INFORMATION
  Report Type: Report from Study
  Country: US (occurrence: US)
  Receive Date: 20160711
  Receipt Date: 20160711
  Transmission Date: 20161109
  Serious: Yes (Other)
  Sender: FDA-Public Use
  Company Number: US-MYLANLABS-2016M1028545

PATIENT

DRUGS (3)
  1. LAPATINIB [Interacting]
     Active Substance: LAPATINIB
     Indication: INVASIVE DUCTAL BREAST CARCINOMA
     Dosage: DAILY
     Route: 048
  2. PACLITAXEL. [Suspect]
     Active Substance: PACLITAXEL
     Indication: INVASIVE DUCTAL BREAST CARCINOMA
     Dosage: EVERY OTHER WEEK FOR 4 CYCLES
     Route: 065
  3. TRASTUZUMAB [Interacting]
     Active Substance: TRASTUZUMAB
     Indication: INVASIVE DUCTAL BREAST CARCINOMA
     Dosage: WEEKLY
     Route: 065

REACTIONS (4)
  - Drug interaction [Unknown]
  - Dermatitis acneiform [Unknown]
  - Staphylococcal infection [Unknown]
  - Rash maculo-papular [Unknown]
